FAERS Safety Report 5368675-0 (Version None)
Quarter: 2007Q2

REPORT INFORMATION
  Report Type: 
  Country: None (occurrence: None)
  Receive Date: 20070625
  Receipt Date: 20070313
  Transmission Date: 20071010
  Serious: No
  Sender: FDA-Public Use
  Company Number: US-BRISTOL-MYERS SQUIBB COMPANY-13712211

PATIENT
  Age: 88 Year
  Sex: Female
  Weight: 35 kg

DRUGS (5)
  1. ORENCIA [Suspect]
     Route: 042
  2. SYNTHROID [Concomitant]
  3. ACTONEL [Concomitant]
  4. CALCIUM CHLORIDE [Concomitant]
  5. TRAMADOL HCL [Concomitant]

REACTIONS (2)
  - DECREASED APPETITE [None]
  - DYSGEUSIA [None]
